FAERS Safety Report 17048457 (Version 1)
Quarter: 2019Q4

REPORT INFORMATION
  Report Type: Spontaneous
  Country: US (occurrence: US)
  Receive Date: 20191019
  Receipt Date: 20191019
  Transmission Date: 20200122
  Serious: Yes (Death, Hospitalization)
  Sender: FDA-Public Use
  Company Number: None

PATIENT
  Age: 3 Year
  Sex: Male
  Weight: 16 kg

DRUGS (3)
  1. THIOGUANINE (6-TG) [Suspect]
     Active Substance: THIOGUANINE ANHYDROUS
     Dates: end: 20190810
  2. DAUNORUBICIN [Suspect]
     Active Substance: DAUNORUBICIN
     Dates: end: 20190809
  3. CYTARABINE. [Suspect]
     Active Substance: CYTARABINE
     Dates: end: 20190810

REACTIONS (6)
  - Pneumonia klebsiella [None]
  - Cardiac arrest [None]
  - Multiple organ dysfunction syndrome [None]
  - Burkholderia test positive [None]
  - Candida infection [None]
  - Cerebral atrophy [None]

NARRATIVE: CASE EVENT DATE: 20190829
